FAERS Safety Report 5792927-3 (Version None)
Quarter: 2008Q2

REPORT INFORMATION
  Report Type: 
  Country: None (occurrence: None)
  Receive Date: 20080627
  Receipt Date: 20080627
  Transmission Date: 20081010
  Serious: Yes (Life-Threatening, Hospitalization)
  Sender: FDA-Public Use
  Company Number: None

PATIENT
  Age: 83 Year
  Sex: Female
  Weight: 41.7 kg

DRUGS (8)
  1. HEPARIN [Suspect]
     Indication: THROMBOSIS PROPHYLAXIS
     Dosage: 5,000 UNITS EVERY 8 HOURS SQ
     Route: 058
     Dates: start: 20080514, end: 20080601
  2. ASPIRIN [Concomitant]
  3. LANOXIN [Concomitant]
  4. DOCUSATE SODIUM [Concomitant]
  5. ACETAMINOPHEN [Concomitant]
  6. NEURONTIN [Concomitant]
  7. BETASPACE [Concomitant]
  8. HUMULIN R [Concomitant]

REACTIONS (4)
  - HYPOAESTHESIA [None]
  - MUSCLE TIGHTNESS [None]
  - OEDEMA PERIPHERAL [None]
  - PAIN IN EXTREMITY [None]
